FAERS Safety Report 8819539 (Version 1)
Quarter: 2012Q4

REPORT INFORMATION
  Report Type: 
  Country: US (occurrence: US)
  Receive Date: 20120930
  Receipt Date: 20120930
  Transmission Date: 20130627
  Serious: Yes (Hospitalization, Other)
  Sender: FDA-Public Use
  Company Number: US-ELI_LILLY_AND_COMPANY-US201209005266

PATIENT
  Sex: Female

DRUGS (7)
  1. CYMBALTA [Suspect]
     Indication: DEPRESSION
     Dosage: 120 mg, unknown
     Dates: end: 201204
  2. ANTIHYPERTENSIVES [Concomitant]
     Dosage: UNK, unknown
  3. SYNTHROID [Concomitant]
     Dosage: UNK, unknown
  4. DIURETICS [Concomitant]
     Dosage: UNK, unknown
  5. DILTIA [Concomitant]
     Dosage: UNK, unknown
  6. DIAZEPAM [Concomitant]
     Dosage: UNK, unknown
  7. ABILIFY [Concomitant]
     Dosage: UNK, unknown

REACTIONS (14)
  - Hepatic cirrhosis [Unknown]
  - Rectal haemorrhage [Unknown]
  - Faeces discoloured [Unknown]
  - Varices oesophageal [Unknown]
  - Liver disorder [Unknown]
  - Spleen disorder [Unknown]
  - Depression [Unknown]
  - Laboratory test abnormal [Unknown]
  - Hepatic enzyme abnormal [Unknown]
  - Melaena [Unknown]
  - Blood glucose increased [Unknown]
  - Weight increased [Unknown]
  - Weight decreased [Unknown]
  - Drug ineffective [Unknown]
